FAERS Safety Report 9748289 (Version 1)
Quarter: 2013Q4

REPORT INFORMATION
  Report Type: Spontaneous
  Country: CA (occurrence: CA)
  Receive Date: 20131212
  Receipt Date: 20131212
  Transmission Date: 20140711
  Serious: Yes (Other)
  Sender: FDA-Public Use
  Company Number: CA-AMGEN-CANSP2013086387

PATIENT
  Age: 56 Year
  Sex: Female
  Weight: 93 kg

DRUGS (11)
  1. ENBREL [Suspect]
     Indication: PRODUCT USED FOR UNKNOWN INDICATION
     Dosage: 50 MG, QWK
     Route: 065
  2. METHOTREXATE [Suspect]
     Indication: PRODUCT USED FOR UNKNOWN INDICATION
     Dosage: UNK
     Route: 065
  3. CALCIUM [Concomitant]
     Dosage: UNK
  4. CELEBREX [Concomitant]
     Dosage: UNK
  5. CLIMARA [Concomitant]
     Dosage: UNK
  6. EFFEXOR [Concomitant]
     Dosage: UNK
  7. FOLIC ACID [Concomitant]
     Dosage: UNK
  8. HYZAAR [Concomitant]
     Dosage: UNK
  9. METFORMIN [Concomitant]
     Dosage: UNK
  10. MOBICOX [Concomitant]
     Dosage: UNK
  11. PANTOLOC                           /01263204/ [Concomitant]
     Dosage: UNK

REACTIONS (7)
  - Immune system disorder [Recovering/Resolving]
  - Bronchitis [Recovering/Resolving]
  - Genital herpes [Recovering/Resolving]
  - Herpes ophthalmic [Recovering/Resolving]
  - Influenza [Recovering/Resolving]
  - Lung infection [Recovering/Resolving]
  - Oral herpes [Recovering/Resolving]
